FAERS Safety Report 16641360 (Version 2)
Quarter: 2019Q3

REPORT INFORMATION
  Report Type: Report from Study
  Country: US (occurrence: US)
  Receive Date: 20190729
  Receipt Date: 20190808
  Transmission Date: 20191004
  Serious: Yes (Other)
  Sender: FDA-Public Use
  Company Number: US-HBP-2019US018869

PATIENT
  Age: 53 Year
  Sex: Male

DRUGS (1)
  1. VALCHLOR [Suspect]
     Active Substance: MECHLORETHAMINE
     Indication: CUTANEOUS T-CELL LYMPHOMA
     Dosage: 2/WEEK
     Route: 061
     Dates: start: 20190218

REACTIONS (5)
  - Rash generalised [Not Recovered/Not Resolved]
  - Scab [Not Recovered/Not Resolved]
  - Rash papular [Not Recovered/Not Resolved]
  - Rash [Not Recovered/Not Resolved]
  - Stevens-Johnson syndrome [Unknown]

NARRATIVE: CASE EVENT DATE: 201903
